FAERS Safety Report 21374099 (Version 2)
Quarter: 2022Q4

REPORT INFORMATION
  Report Type: Spontaneous
  Country: JP (occurrence: JP)
  Receive Date: 20220926
  Receipt Date: 20221013
  Transmission Date: 20230112
  Serious: Yes (Other)
  Sender: FDA-Public Use
  Company Number: JP-NOVARTISPH-NVSJ2022JP098001

PATIENT
  Age: 58 Year
  Sex: Male

DRUGS (2)
  1. ENTRESTO [Suspect]
     Active Substance: SACUBITRIL\VALSARTAN
     Indication: Hypertension
     Dosage: 200 MG, QD, MORNING
     Route: 048
     Dates: start: 20220311, end: 20220728
  2. FEBUXOSTAT [Concomitant]
     Active Substance: FEBUXOSTAT
     Indication: Product used for unknown indication
     Dosage: 10 MG, QD, MORNING
     Route: 048
     Dates: start: 20210906

REACTIONS (2)
  - Hyponatraemia [Recovered/Resolved]
  - Hypochloraemia [Recovered/Resolved]

NARRATIVE: CASE EVENT DATE: 20220725
